FAERS Safety Report 23808121 (Version 1)
Quarter: 2024Q2

REPORT INFORMATION
  Report Type: Spontaneous
  Country: US (occurrence: US)
  Receive Date: 20240502
  Receipt Date: 20240502
  Transmission Date: 20240716
  Serious: Yes (Other)
  Sender: FDA-Public Use
  Company Number: US-AUROBINDO-AUR-APL-2024-020161

PATIENT
  Sex: Female

DRUGS (10)
  1. PREDNISONE [Suspect]
     Active Substance: PREDNISONE
     Indication: Product used for unknown indication
     Dosage: 5 MILLIGRAM, ONCE A DAY (IN THE MORNING)
     Route: 065
  2. PREDNISONE [Suspect]
     Active Substance: PREDNISONE
     Dosage: 2.5 MILLIGRAM, ONCE A DAY  (IN THE AFTERNOON)
     Route: 065
  3. PREDNISONE [Suspect]
     Active Substance: PREDNISONE
     Dosage: 5 MILLIGRAM, DAILY
     Route: 065
  4. PREDNISONE [Suspect]
     Active Substance: PREDNISONE
     Dosage: 2.5 MILLIGRAM, DAILY
     Route: 065
  5. VERAPAMIL HYDROCHLORIDE [Suspect]
     Active Substance: VERAPAMIL HYDROCHLORIDE
     Indication: Insulinoma
     Dosage: UNK
     Route: 065
  6. DIAZOXIDE [Suspect]
     Active Substance: DIAZOXIDE
     Indication: Insulinoma
     Dosage: UNK
     Route: 065
  7. DIAZOXIDE [Suspect]
     Active Substance: DIAZOXIDE
     Dosage: 300 MILLIGRAM, DAILY
     Route: 065
  8. DIAZOXIDE [Suspect]
     Active Substance: DIAZOXIDE
     Dosage: 200 MILLIGRAM, DAILY
     Route: 065
  9. OCTREOTIDE [Suspect]
     Active Substance: OCTREOTIDE\OCTREOTIDE ACETATE
     Indication: Insulinoma
     Dosage: UNK
     Route: 065
  10. HYDROCHLOROTHIAZIDE [Suspect]
     Active Substance: HYDROCHLOROTHIAZIDE
     Indication: Product used for unknown indication
     Dosage: UNK
     Route: 065

REACTIONS (3)
  - Drug ineffective [Unknown]
  - Intentional product misuse [Unknown]
  - Treatment noncompliance [Unknown]
